FAERS Safety Report 18425459 (Version 2)
Quarter: 2020Q4

REPORT INFORMATION
  Report Type: Report from Study
  Country: US (occurrence: US)
  Receive Date: 20201026
  Receipt Date: 20201201
  Transmission Date: 20210114
  Serious: Yes (Other)
  Sender: FDA-Public Use
  Company Number: US-AMGEN-USASL2020135465

PATIENT
  Age: 37 Year
  Sex: Female

DRUGS (2)
  1. ENBREL [Suspect]
     Active Substance: ETANERCEPT
     Indication: ANKYLOSING SPONDYLITIS
     Dosage: 50 MILLIGRAM, QWK
     Route: 065
     Dates: start: 202008, end: 202009
  2. ENBREL [Suspect]
     Active Substance: ETANERCEPT
     Indication: AXIAL SPONDYLOARTHRITIS
     Dosage: 50 MILLIGRAM, QWK
     Route: 065
     Dates: start: 20201011

REACTIONS (12)
  - Feeling abnormal [Recovered/Resolved]
  - Back pain [Unknown]
  - Ear infection [Unknown]
  - Injection site pain [Unknown]
  - Viral infection [Unknown]
  - Eye inflammation [Unknown]
  - Blood pressure increased [Recovered/Resolved]
  - Arteriospasm coronary [Unknown]
  - Hypotension [Unknown]
  - Pain in extremity [Unknown]
  - Gastric infection [Unknown]
  - Eye swelling [Recovered/Resolved]

NARRATIVE: CASE EVENT DATE: 2020
